FAERS Safety Report 24384429 (Version 2)
Quarter: 2024Q4

REPORT INFORMATION
  Report Type: Spontaneous
  Country: US (occurrence: US)
  Receive Date: 20241001
  Receipt Date: 20241011
  Transmission Date: 20250114
  Serious: Yes (Hospitalization, Other)
  Sender: HIKMA
  Company Number: US-HIKMA PHARMACEUTICALS USA INC.-US-H14001-24-08418

PATIENT
  Age: 18 Year
  Sex: Male
  Weight: 104 kg

DRUGS (6)
  1. MERCAPTOPURINE [Suspect]
     Active Substance: MERCAPTOPURINE
     Indication: B-cell type acute leukaemia
     Dosage: 50 MILLIGRAM (1 TABLET X 4, 1/2 TAB X 3 DAYS)
     Route: 048
     Dates: start: 20211220, end: 20240814
  2. METHOTREXATE [Suspect]
     Active Substance: METHOTREXATE
     Indication: B-cell type acute leukaemia
     Dosage: 10 MILLIGRAM, WEEKLY
     Route: 048
     Dates: start: 20221109, end: 20240814
  3. METHOTREXATE [Suspect]
     Active Substance: METHOTREXATE
     Indication: B-cell type acute leukaemia
     Dosage: 15 MILLIGRAM, SINGLE
     Route: 037
     Dates: start: 20211115, end: 20240814
  4. PREDNISONE [Suspect]
     Active Substance: PREDNISONE
     Indication: B-cell type acute leukaemia
     Dosage: 45 MILLIGRAM, BID
     Route: 048
     Dates: start: 20211108, end: 20240814
  5. RUXOLITINIB [Suspect]
     Active Substance: RUXOLITINIB
     Indication: B-cell type acute leukaemia
     Dosage: 100 MILLIGRAM, BID
     Route: 048
     Dates: start: 20211220, end: 20240814
  6. VINCRISTINE [Suspect]
     Active Substance: VINCRISTINE
     Indication: B-cell type acute leukaemia
     Dosage: 2 MILLIGRAM, SINGLE
     Route: 042
     Dates: start: 20220103, end: 20240814

REACTIONS (12)
  - Anal abscess [Recovered/Resolved]
  - Proctalgia [Unknown]
  - Body temperature increased [Unknown]
  - White blood cell count decreased [Unknown]
  - Red blood cell count decreased [Unknown]
  - Haematocrit decreased [Unknown]
  - Platelet count decreased [Unknown]
  - Red cell distribution width increased [Unknown]
  - Blood glucose increased [Unknown]
  - Alanine aminotransferase increased [Unknown]
  - C-reactive protein increased [Unknown]
  - Blood calcium decreased [Unknown]

NARRATIVE: CASE EVENT DATE: 20240814
